FAERS Safety Report 6117368-0 (Version None)
Quarter: 2009Q1

REPORT INFORMATION
  Report Type: 
  Country: None (occurrence: None)
  Receive Date: 20090314
  Receipt Date: 20090113
  Transmission Date: 20090719
  Serious: No
  Sender: FDA-Public Use
  Company Number: US-ABBOTT-09P-163-0497903-00

PATIENT
  Sex: Female
  Weight: 38.59 kg

DRUGS (12)
  1. HUMIRA [Suspect]
     Indication: RHEUMATOID ARTHRITIS
     Route: 058
  2. TRAMADOL HCL [Concomitant]
     Indication: PAIN
     Route: 048
  3. SPIRIVA [Concomitant]
     Indication: CHRONIC OBSTRUCTIVE PULMONARY DISEASE
     Route: 055
  4. HYDROCHLOROTHIAZIDE [Concomitant]
     Indication: DIURETIC THERAPY
     Route: 048
  5. ALBUTEROL/IPRATROPIUM BROMIDE [Concomitant]
     Indication: CHRONIC OBSTRUCTIVE PULMONARY DISEASE
     Dosage: RESCUE INHALER AS NEEDED
     Route: 055
  6. CITRACAL + D [Concomitant]
     Indication: MINERAL SUPPLEMENTATION
     Route: 048
  7. ASCORBIC ACID [Concomitant]
     Indication: VITAMIN SUPPLEMENTATION
     Route: 048
  8. MULTIVITAMIN 50+ [Concomitant]
     Indication: VITAMIN SUPPLEMENTATION
     Dosage: SENIOR FORMULA
     Route: 048
  9. ESTRADIOL [Concomitant]
     Indication: HORMONE REPLACEMENT THERAPY
     Route: 048
  10. PLAVIX [Concomitant]
     Indication: ATRIAL FLUTTER
     Route: 048
  11. LOVAZA [Concomitant]
     Indication: MEDICAL DIET
     Route: 048
  12. BENADRYL [Concomitant]
     Dosage: 0.5 TAB DAY OF AND DAY AFTER HUMIRA
     Route: 048

REACTIONS (1)
  - NASOPHARYNGITIS [None]
